FAERS Safety Report 8336224-0 (Version None)
Quarter: 2012Q2

REPORT INFORMATION
  Report Type: 
  Country: None (occurrence: None)
  Receive Date: 20120504
  Receipt Date: 20120426
  Transmission Date: 20120825
  Serious: Yes (Life-Threatening, Hospitalization, Other)
  Sender: FDA-Public Use
  Company Number: SK-BAYER-2012-041301

PATIENT
  Age: 22 Year
  Sex: Female

DRUGS (1)
  1. YAZ [Suspect]
     Indication: MENSTRUAL DISORDER

REACTIONS (3)
  - BLINDNESS [None]
  - VENOUS THROMBOSIS [None]
  - OEDEMA PERIPHERAL [None]
